FAERS Safety Report 8235687-9 (Version None)
Quarter: 2012Q1

REPORT INFORMATION
  Report Type: 
  Country: None (occurrence: None)
  Receive Date: 20120326
  Receipt Date: 20120321
  Transmission Date: 20120608
  Serious: Yes (Death)
  Sender: FDA-Public Use
  Company Number: PHHY2012IT024763

PATIENT

DRUGS (3)
  1. PREDNISONE TAB [Suspect]
  2. INFLIXIMAB [Suspect]
  3. CYCLOSPORINE [Suspect]

REACTIONS (2)
  - SEPSIS [None]
  - DRUG RESISTANCE [None]
